FAERS Safety Report 4289658-8 (Version None)
Quarter: 2004Q1

REPORT INFORMATION
  Report Type: 
  Country: None (occurrence: None)
  Receive Date: 20040206
  Receipt Date: 20040129
  Transmission Date: 20041129
  Serious: Yes (Hospitalization, Disabling)
  Sender: FDA-Public Use
  Company Number: K200400115

PATIENT
  Age: 80 Year
  Sex: Female

DRUGS (3)
  1. ALTACE [Suspect]
     Indication: HYPERTENSION
     Dosage: 5 MG, QD, ORAL
     Route: 048
     Dates: start: 20030701, end: 20031202
  2. OROXINE (LEVOTHYROXINE SODIUM) [Concomitant]
  3. OSTELIN (ERGOCALCIFEROL) [Concomitant]

REACTIONS (2)
  - DELUSION [None]
  - MAJOR DEPRESSION [None]
